FAERS Safety Report 11131952 (Version 1)
Quarter: 2015Q2

REPORT INFORMATION
  Report Type: Spontaneous
  Country: US (occurrence: None)
  Receive Date: 20150521
  Receipt Date: 20150521
  Transmission Date: 20150821
  Serious: Yes (Life-Threatening, Hospitalization)
  Sender: FDA-Public Use
  Company Number: None

PATIENT
  Age: 71 Year
  Sex: Female
  Weight: 79.38 kg

DRUGS (9)
  1. ALPHA LIPOIC ACID [Concomitant]
     Active Substance: .ALPHA.-LIPOIC ACID
  2. GLUCOPHAGE [Concomitant]
     Active Substance: METFORMIN HYDROCHLORIDE
  3. ALEVE [Concomitant]
     Active Substance: NAPROXEN SODIUM
  4. LANTUS [Concomitant]
     Active Substance: INSULIN GLARGINE
  5. INVOKANA [Suspect]
     Active Substance: CANAGLIFLOZIN
     Indication: TYPE 2 DIABETES MELLITUS
     Route: 048
  6. LEVOTHYROXINE [Concomitant]
     Active Substance: LEVOTHYROXINE
  7. ENALAPRIL [Concomitant]
     Active Substance: ENALAPRIL
  8. DEXILANT [Concomitant]
     Active Substance: DEXLANSOPRAZOLE
  9. PROBIOTIC [Concomitant]
     Active Substance: PROBIOTICS NOS

REACTIONS (7)
  - Urinary tract disorder [None]
  - Stomatitis [None]
  - Mouth haemorrhage [None]
  - Vaginal haemorrhage [None]
  - Vulvovaginal burning sensation [None]
  - Immune thrombocytopenic purpura [None]
  - Drug interaction [None]

NARRATIVE: CASE EVENT DATE: 20140621
